FAERS Safety Report 25321567 (Version 3)
Quarter: 2025Q2

REPORT INFORMATION
  Report Type: Spontaneous
  Country: US (occurrence: US)
  Receive Date: 20250516
  Receipt Date: 20250627
  Transmission Date: 20250716
  Serious: No
  Sender: SANOFI AVENTIS
  Company Number: US-SA-2025SA138549

PATIENT
  Age: 61 Year
  Sex: Male
  Weight: 102.27 kg

DRUGS (12)
  1. DUPIXENT [Suspect]
     Active Substance: DUPILUMAB
     Indication: Nasal polyps
     Dosage: 300 MG, QOW
     Route: 058
     Dates: start: 202503
  2. FASENRA [Suspect]
     Active Substance: BENRALIZUMAB
     Indication: Asthma
  3. PANTOPRAZOLE [Concomitant]
     Active Substance: PANTOPRAZOLE
  4. MONTELUKAST [Concomitant]
     Active Substance: MONTELUKAST
     Dosage: 1 TABLET ONCE DAILY AT BEDTIME
     Route: 048
  5. SERTRALINE [Concomitant]
     Active Substance: SERTRALINE HYDROCHLORIDE
     Dosage: 1 TABLET ONCE DAILY
     Route: 048
  6. PREDNISONE [Concomitant]
     Active Substance: PREDNISONE
     Dosage: 2 DF, BID (2 TABLETS TWICE A DAY) FOR 2 DAYS
     Dates: start: 20250107
  7. PREDNISONE [Concomitant]
     Active Substance: PREDNISONE
     Dosage: 1 DF, BID (1 TABLET TWICE A DAY FOR 2 DAYS)
     Dates: start: 202506
  8. PREDNISONE [Concomitant]
     Active Substance: PREDNISONE
     Dosage: 1 DF, QD (1 TABLET ONCE A DAY FOR 2 DAYS)
     Dates: start: 202506
  9. PREDNISONE [Concomitant]
     Active Substance: PREDNISONE
     Dosage: 0.5 DF, QD (HALF TABLET FOR 2 DAYS THEN STOP)
     Dates: start: 202506
  10. DILTIAZEM [Concomitant]
     Active Substance: DILTIAZEM
  11. LOSARTAN [Concomitant]
     Active Substance: LOSARTAN
  12. LEVOTHYROXINE [Concomitant]
     Active Substance: LEVOTHYROXINE

REACTIONS (3)
  - Weight increased [Unknown]
  - Asthenia [Unknown]
  - Myalgia [Not Recovered/Not Resolved]

NARRATIVE: CASE EVENT DATE: 20250101
